FAERS Safety Report 6016309-4 (Version None)
Quarter: 2008Q4

REPORT INFORMATION
  Report Type: 
  Country: None (occurrence: None)
  Receive Date: 20081222
  Receipt Date: 20081211
  Transmission Date: 20090506
  Serious: Yes (Other)
  Sender: FDA-Public Use
  Company Number: US-JNJFOC-20081203970

PATIENT
  Sex: Male

DRUGS (1)
  1. MYLANTA [Suspect]
     Indication: ABDOMINAL DISCOMFORT

REACTIONS (2)
  - PRODUCT TAMPERING [None]
  - VOMITING [None]
